FAERS Safety Report 19453683 (Version 1)
Quarter: 2021Q2

REPORT INFORMATION
  Report Type: Other
  Country: KR (occurrence: KR)
  Receive Date: 20210623
  Receipt Date: 20210623
  Transmission Date: 20210717
  Serious: Yes (Hospitalization, Other)
  Sender: FDA-Public Use
  Company Number: KR-ROCHE-2851734

PATIENT
  Age: 37 Year
  Sex: Female

DRUGS (2)
  1. AVASTIN [Suspect]
     Active Substance: BEVACIZUMAB
     Indication: ADRENOCORTICAL CARCINOMA
     Route: 065
     Dates: start: 20151105
  2. FOLFOX [Suspect]
     Active Substance: FLUOROURACIL\LEUCOVORIN CALCIUM\OXALIPLATIN
     Indication: ADRENOCORTICAL CARCINOMA
     Route: 065
     Dates: start: 20151105

REACTIONS (12)
  - Aspergillus infection [Unknown]
  - Systemic candida [Recovering/Resolving]
  - Device related infection [Unknown]
  - Pneumonia [Unknown]
  - Pneumocystis jirovecii pneumonia [Unknown]
  - Candida infection [Recovering/Resolving]
  - Pneumonia bacterial [Unknown]
  - Staphylococcal infection [Recovering/Resolving]
  - Stenotrophomonas infection [Unknown]
  - Septic shock [Recovering/Resolving]
  - Neutropenia [Recovered/Resolved]
  - Bronchopulmonary aspergillosis [Unknown]
